FAERS Safety Report 5871572-5 (Version None)
Quarter: 2008Q3

REPORT INFORMATION
  Report Type: 
  Country: None (occurrence: None)
  Receive Date: 20080904
  Receipt Date: 20080904
  Transmission Date: 20090109
  Serious: No
  Sender: FDA-Public Use
  Company Number: None

PATIENT
  Sex: Female
  Weight: 72.5755 kg

DRUGS (1)
  1. RECLAST [Suspect]
     Indication: OSTEOPOROSIS
     Dosage: 1 X A YEAR
     Dates: start: 20080818

REACTIONS (4)
  - CHILLS [None]
  - DYSPEPSIA [None]
  - HEADACHE [None]
  - PAIN [None]
